FAERS Safety Report 7640709-X (Version None)
Quarter: 2011Q3

REPORT INFORMATION
  Report Type: 
  Country: None (occurrence: None)
  Receive Date: 20110728
  Receipt Date: 20110714
  Transmission Date: 20111222
  Serious: Yes (Hospitalization)
  Sender: FDA-Public Use
  Company Number: GB-RANBAXY-2011RR-46299

PATIENT
  Age: 79 Year
  Sex: Female

DRUGS (3)
  1. FLUOXETINE [Suspect]
     Indication: DEPRESSION
     Dosage: 40 MG, UNK
     Route: 065
  2. MIRTAZAPINE [Concomitant]
     Indication: DEPRESSION
     Route: 065
  3. FLUOXETINE [Suspect]
     Dosage: 60 MG, UNK
     Route: 065

REACTIONS (3)
  - UPPER GASTROINTESTINAL HAEMORRHAGE [None]
  - OESOPHAGITIS [None]
  - PLATELET DISORDER [None]
